FAERS Safety Report 7933422-2 (Version None)
Quarter: 2011Q4

REPORT INFORMATION
  Report Type: 
  Country: None (occurrence: None)
  Receive Date: 20111116
  Receipt Date: 20111104
  Transmission Date: 20120403
  Serious: Yes (Other)
  Sender: FDA-Public Use
  Company Number: 2011SP052127

PATIENT
  Age: 18 Year
  Sex: Female
  Weight: 50.8029 kg

DRUGS (1)
  1. IMPLANON [Suspect]
     Indication: CONTRACEPTION
     Dates: start: 20110419

REACTIONS (5)
  - DYSPNOEA [None]
  - WEIGHT DECREASED [None]
  - BLISTER [None]
  - SWELLING FACE [None]
  - RASH [None]
